FAERS Safety Report 15806340 (Version 1)
Quarter: 2019Q1

REPORT INFORMATION
  Report Type: Spontaneous
  Country: US (occurrence: US)
  Receive Date: 20190110
  Receipt Date: 20190110
  Transmission Date: 20190417
  Serious: Yes (Other)
  Sender: FDA-Public Use
  Company Number: US-PFIZER INC-2019009552

PATIENT
  Age: 37 Year
  Sex: Female
  Weight: 199.58 kg

DRUGS (1)
  1. ZYVOX [Suspect]
     Active Substance: LINEZOLID
     Dosage: 100 MG, 2X/DAY

REACTIONS (3)
  - Neuropathy peripheral [Unknown]
  - Vision blurred [Unknown]
  - Product dose omission [Unknown]
